FAERS Safety Report 9829864 (Version 2)
Quarter: 2014Q1

REPORT INFORMATION
  Report Type: Report from Study
  Country: DE (occurrence: DE)
  Receive Date: 20140120
  Receipt Date: 20140219
  Transmission Date: 20141002
  Serious: Yes (Hospitalization, Other)
  Sender: FDA-Public Use
  Company Number: DE-ROCHE-1333941

PATIENT
  Sex: Female

DRUGS (9)
  1. RANIBIZUMAB [Suspect]
     Indication: RETINAL VEIN OCCLUSION
     Route: 050
     Dates: start: 20130114
  2. RANIBIZUMAB [Suspect]
     Route: 050
     Dates: start: 20130215, end: 20130215
  3. RANIBIZUMAB [Suspect]
     Route: 050
     Dates: start: 20121217
  4. BEVACIZUMAB [Suspect]
     Indication: RETINAL VEIN OCCLUSION
     Route: 065
  5. BRINZOLAMIDE [Concomitant]
  6. LATANOPROST EYE DROPS [Concomitant]
  7. AMLODIPINE [Concomitant]
     Indication: HYPERTENSION
  8. ACETYLSALICYLIC ACID [Concomitant]
     Route: 065
  9. LEVOTHYROXINE [Concomitant]

REACTIONS (7)
  - Headache [Recovered/Resolved]
  - Optic neuritis [Recovered/Resolved]
  - Tubulointerstitial nephritis [Recovered/Resolved]
  - Macular oedema [Unknown]
  - Ischaemia [Unknown]
  - Visual acuity reduced [Unknown]
  - Retinal detachment [Unknown]
